FAERS Safety Report 23807373 (Version 1)
Quarter: 2024Q2

REPORT INFORMATION
  Report Type: Spontaneous
  Country: US (occurrence: US)
  Receive Date: 20240502
  Receipt Date: 20240502
  Transmission Date: 20240716
  Serious: Yes (Death)
  Sender: FDA-Public Use
  Company Number: US-MYLANLABS-2024M1037732

PATIENT
  Age: 33 Year
  Sex: Female

DRUGS (8)
  1. DEXAMETHASONE [Suspect]
     Active Substance: DEXAMETHASONE
     Indication: Hepatosplenic T-cell lymphoma
     Dosage: UNK; FIRST-LINE THERAPY WITH HYPER-FRACTIONATED DEXAMETHASONE
     Route: 065
  2. DOXORUBICIN [Suspect]
     Active Substance: DOXORUBICIN
     Indication: Hepatosplenic T-cell lymphoma
     Dosage: UNK, FIRST-LINE THERAPY WITH HYPER-FRACTIONATED DOXORUBICIN
     Route: 065
  3. VINCRISTINE SULFATE [Suspect]
     Active Substance: VINCRISTINE SULFATE
     Indication: Hepatosplenic T-cell lymphoma
     Dosage: UNK, FIRST-LINE THERAPY WITH HYPER-FRACTIONATED VINCRISTINE
     Route: 065
  4. CYCLOPHOSPHAMIDE [Suspect]
     Active Substance: CYCLOPHOSPHAMIDE
     Indication: Hepatosplenic T-cell lymphoma
     Dosage: UNK, FIRST-LINE THERAPY WITH HYPER-FRACTIONATED CYCLOPHOSPHAMIDE
     Route: 065
  5. ALEMTUZUMAB [Suspect]
     Active Substance: ALEMTUZUMAB
     Indication: Hepatosplenic T-cell lymphoma
     Dosage: UNK, SECOND-LINE THERAPY
     Route: 065
  6. DUVELISIB [Suspect]
     Active Substance: DUVELISIB
     Indication: Hepatosplenic T-cell lymphoma
     Dosage: UNK, THIRD-LINE THERAPY
     Route: 065
  7. ROMIDEPSIN [Suspect]
     Active Substance: ROMIDEPSIN
     Indication: Hepatosplenic T-cell lymphoma
     Dosage: UNK, THIRD-LINE THERAPY
     Route: 065
  8. RUXOLITINIB [Suspect]
     Active Substance: RUXOLITINIB
     Indication: Hepatosplenic T-cell lymphoma
     Dosage: UNK, FOURTH-LINE THERAPY
     Route: 065

REACTIONS (1)
  - Drug ineffective [Fatal]
